FAERS Safety Report 16956959 (Version 1)
Quarter: 2019Q4

REPORT INFORMATION
  Report Type: Spontaneous
  Country: US (occurrence: US)
  Receive Date: 20191024
  Receipt Date: 20191024
  Transmission Date: 20200122
  Serious: No
  Sender: FDA-Public Use
  Company Number: US-BAYER-2019-191334

PATIENT
  Sex: Female

DRUGS (5)
  1. TETRYZOLINE HYDROCHLORIDE [Concomitant]
     Active Substance: TETRAHYDROZOLINE HYDROCHLORIDE
     Dosage: UNK
  2. DAILY MULTIVITAMIN [Concomitant]
     Active Substance: VITAMINS
     Dosage: UNK
  3. ACATAR [DEXTROMETHORPHAN HYDROBROMIDE;GUAIFENESIN] [Concomitant]
     Dosage: UNK
  4. BACITRACIN;NEOMYCIN;POLYMYXIN B [Concomitant]
     Dosage: UNK
  5. BETASERON [Suspect]
     Active Substance: INTERFERON BETA-1B
     Indication: MULTIPLE SCLEROSIS
     Dosage: 0.25 MG, QOD
     Route: 058
     Dates: start: 20150225

REACTIONS (1)
  - Pruritus [None]
